FAERS Safety Report 9430200 (Version 1)
Quarter: 2013Q3

REPORT INFORMATION
  Report Type: Spontaneous
  Country: US (occurrence: US)
  Receive Date: 20130730
  Receipt Date: 20130730
  Transmission Date: 20140515
  Serious: No
  Sender: FDA-Public Use
  Company Number: US-ROXANE LABORATORIES, INC.-2013-RO-01237RO

PATIENT
  Age: 57 Year
  Sex: Female

DRUGS (2)
  1. MORPHINE [Suspect]
  2. LEVORPHANOL TARTRATE [Concomitant]

REACTIONS (3)
  - Pruritus [Unknown]
  - Swelling [Unknown]
  - Medication error [Unknown]
